FAERS Safety Report 19219671 (Version 1)
Quarter: 2021Q2

REPORT INFORMATION
  Report Type: Other
  Country: CA (occurrence: CA)
  Receive Date: 20210506
  Receipt Date: 20210506
  Transmission Date: 20210717
  Serious: Yes (Hospitalization, Other)
  Sender: FDA-Public Use
  Company Number: CA-CELLTRION INC.-2021CA006006

PATIENT

DRUGS (1)
  1. RITUXIMAB (UNKNOWN) [Suspect]
     Active Substance: RITUXIMAB
     Indication: RHEUMATOID ARTHRITIS
     Dosage: 1000 MG, 1 EVERY 2 WEEKS
     Route: 063

REACTIONS (5)
  - Decreased immune responsiveness [Recovered/Resolved]
  - Exposure via breast milk [Recovered/Resolved]
  - Cytomegalovirus infection [Recovered/Resolved]
  - Dyspnoea [Recovered/Resolved]
  - Rhinovirus infection [Recovered/Resolved]
